FAERS Safety Report 22324284 (Version 1)
Quarter: 2023Q2

REPORT INFORMATION
  Report Type: Spontaneous
  Country: US (occurrence: None)
  Receive Date: 20230515
  Receipt Date: 20230515
  Transmission Date: 20230721
  Serious: Yes (Hospitalization)
  Sender: FDA-Public Use
  Company Number: None

PATIENT
  Age: 45 Year
  Sex: Male
  Weight: 46.27 kg

DRUGS (2)
  1. PAXLOVID [Suspect]
     Active Substance: NIRMATRELVIR\RITONAVIR
     Indication: COVID-19
     Dosage: OTHER QUANTITY : 300/100 DF;?FREQUENCY : TWICE A DAY;?
     Route: 048
     Dates: start: 20230506, end: 20230507
  2. KESIMPTA [Concomitant]
     Active Substance: OFATUMUMAB

REACTIONS (4)
  - Chills [None]
  - Fatigue [None]
  - Syncope [None]
  - Urinary incontinence [None]

NARRATIVE: CASE EVENT DATE: 20230507
